FAERS Safety Report 20663350 (Version 1)
Quarter: 2022Q1

REPORT INFORMATION
  Report Type: Spontaneous
  Country: US (occurrence: None)
  Receive Date: 20220331
  Receipt Date: 20220331
  Transmission Date: 20220423
  Serious: Yes (Other)
  Sender: FDA-Public Use
  Company Number: None

PATIENT
  Age: 24 Year
  Sex: Female
  Weight: 72 kg

DRUGS (6)
  1. NEXPLANON [Suspect]
     Active Substance: ETONOGESTREL
     Indication: Hormone therapy
     Dosage: OTHER FREQUENCY : EVERY 3-5 YEARS;?OTHER ROUTE : IMPLANTED;?
     Route: 050
  2. TYLENOL [Concomitant]
     Active Substance: ACETAMINOPHEN
  3. ADVIL [Concomitant]
     Active Substance: IBUPROFEN
  4. BENADRYL [Concomitant]
     Active Substance: DIPHENHYDRAMINE HYDROCHLORIDE
  5. XYZAL [Concomitant]
     Active Substance: LEVOCETIRIZINE DIHYDROCHLORIDE
  6. SENNA [Concomitant]
     Active Substance: SENNA LEAF\SENNOSIDES\SENNOSIDES A AND B

REACTIONS (8)
  - Anger [None]
  - Weight increased [None]
  - Fatigue [None]
  - Ovarian cyst [None]
  - Abdominal pain [None]
  - Haemorrhage [None]
  - Hair growth abnormal [None]
  - Fibrocystic breast disease [None]

NARRATIVE: CASE EVENT DATE: 20130601
